FAERS Safety Report 23143515 (Version 1)
Quarter: 2023Q4

REPORT INFORMATION
  Report Type: Spontaneous
  Country: US (occurrence: US)
  Receive Date: 20231103
  Receipt Date: 20231103
  Transmission Date: 20240110
  Serious: No
  Sender: FDA-Public Use
  Company Number: US-MYOVANT SCIENCES GMBH-2023MYSCI0800455

PATIENT
  Age: 73 Year
  Sex: Male

DRUGS (11)
  1. ORGOVYX [Suspect]
     Active Substance: RELUGOLIX
     Indication: Prostate cancer
     Dosage: UNKNOWN
     Route: 048
     Dates: start: 202205, end: 202205
  2. ORGOVYX [Suspect]
     Active Substance: RELUGOLIX
     Dosage: 120 MILLIGRAM, QD
     Route: 048
     Dates: start: 202305, end: 20230812
  3. FARXIGA [Concomitant]
     Active Substance: DAPAGLIFLOZIN PROPANEDIOL
     Indication: Renal impairment
     Dosage: 10 MILLIGRAM, QD
     Route: 048
     Dates: start: 20230812
  4. TAMSULOSIN [Concomitant]
     Active Substance: TAMSULOSIN
     Indication: Micturition disorder
     Dosage: 0.4 MILLIGRAM, QD
     Route: 048
     Dates: start: 20230811
  5. REPATHA [Concomitant]
     Active Substance: EVOLOCUMAB
     Indication: Blood cholesterol increased
     Dosage: 140 MILLIGRAM PER MILLILITRE,INJECTION Q2WK
     Route: 065
     Dates: start: 2015
  6. TERAZOSIN [Concomitant]
     Active Substance: TERAZOSIN HYDROCHLORIDE
     Indication: Blood pressure abnormal
     Dosage: 2 MILLIGRAM, QD, 1 CAP AT BEDTIME
     Route: 048
     Dates: start: 2021
  7. AMLODIPINE [Concomitant]
     Active Substance: AMLODIPINE BESYLATE
     Indication: Blood pressure increased
     Dosage: 10 MILLIGRAM, QD
     Route: 048
     Dates: start: 2014
  8. CANDESARTAN [Concomitant]
     Active Substance: CANDESARTAN
     Indication: Blood pressure increased
     Dosage: 32 MILLIGRAM, QD
     Route: 065
     Dates: start: 2014
  9. METOPROLOL [Concomitant]
     Active Substance: METOPROLOL
     Indication: Blood pressure increased
     Dosage: 100 MILLIGRAM, BID
     Route: 065
     Dates: start: 2014
  10. FUROSEMIDE [Concomitant]
     Active Substance: FUROSEMIDE
     Indication: Diuretic therapy
     Dosage: 20 MILLIGRAM, QD
     Route: 065
     Dates: start: 2014
  11. METFORMIN [Concomitant]
     Active Substance: METFORMIN HYDROCHLORIDE
     Indication: Blood glucose abnormal
     Dosage: 500 MILLIGRAM, BID
     Route: 065
     Dates: start: 2021

REACTIONS (4)
  - Nausea [Unknown]
  - Hot flush [Unknown]
  - Therapy interrupted [Not Recovered/Not Resolved]
  - Inappropriate schedule of product administration [Recovered/Resolved]

NARRATIVE: CASE EVENT DATE: 20220501
